FAERS Safety Report 7477853-6 (Version None)
Quarter: 2011Q2

REPORT INFORMATION
  Report Type: 
  Country: None (occurrence: None)
  Receive Date: 20110513
  Receipt Date: 20110502
  Transmission Date: 20111010
  Serious: Yes (Other)
  Sender: FDA-Public Use
  Company Number: US-BAYER-2011-038345

PATIENT
  Sex: Female

DRUGS (1)
  1. CLIMARA [Suspect]
     Indication: AUTONOMIC NERVOUS SYSTEM IMBALANCE
     Dosage: DAILY DOSE .075 MG
     Route: 062
     Dates: start: 20020101

REACTIONS (5)
  - COLITIS ULCERATIVE [None]
  - EYE INFECTION [None]
  - DRY EYE [None]
  - HYSTERECTOMY [None]
  - AFFECT LABILITY [None]
